FAERS Safety Report 6311772-3 (Version None)
Quarter: 2009Q3

REPORT INFORMATION
  Report Type: 
  Country: None (occurrence: None)
  Receive Date: 20090817
  Receipt Date: 20090812
  Transmission Date: 20100115
  Serious: Yes (Hospitalization, Other)
  Sender: FDA-Public Use
  Company Number: US-B.I. PHARMACEUTICALS,INC./RIDGEFIELD-2009-BP-09559BP

PATIENT
  Sex: Female

DRUGS (7)
  1. ZANTAC 75 [Suspect]
     Indication: GASTROOESOPHAGEAL REFLUX DISEASE
     Dosage: 225 MG
     Route: 048
     Dates: start: 20060601
  2. ZANTAC 75 [Suspect]
     Indication: HYPERCHLORHYDRIA
  3. BONIVA [Suspect]
  4. COUGH MEDICINE [Suspect]
     Indication: BRONCHITIS
  5. CALCIUM SUPPLEMENT [Concomitant]
     Indication: OSTEOPOROSIS
  6. PRAVACHOL [Concomitant]
     Indication: BLOOD CHOLESTEROL INCREASED
  7. ATENOLOL [Concomitant]
     Indication: HYPERTENSION
     Dosage: 25 MG
     Route: 048
     Dates: start: 20050101

REACTIONS (13)
  - ABDOMINAL DISCOMFORT [None]
  - ABDOMINAL PAIN [None]
  - ASTHENIA [None]
  - BRONCHITIS [None]
  - CHEST DISCOMFORT [None]
  - DIZZINESS [None]
  - DRUG ADMINISTRATION ERROR [None]
  - FATIGUE [None]
  - HEAD DISCOMFORT [None]
  - PAIN [None]
  - PULMONARY OEDEMA [None]
  - SYNCOPE [None]
  - VERTIGO [None]
